FAERS Safety Report 10267879 (Version 1)
Quarter: 2014Q2

REPORT INFORMATION
  Report Type: Spontaneous
  Country: IN (occurrence: IN)
  Receive Date: 20140630
  Receipt Date: 20140630
  Transmission Date: 20141212
  Serious: Yes (Life-Threatening)
  Sender: FDA-Public Use
  Company Number: IN-ASTRAZENECA-2014SE47396

PATIENT
  Age: 50 Year
  Sex: Female

DRUGS (4)
  1. BRILINTA [Suspect]
     Indication: ACUTE CORONARY SYNDROME
     Route: 048
     Dates: start: 20131123, end: 20140624
  2. ECOSPRIN [Suspect]
     Indication: ACUTE CORONARY SYNDROME
     Route: 048
     Dates: start: 20131123
  3. RAMIPRIL [Concomitant]
     Dosage: TOTAL DAILY DOSE: 5 MG
     Route: 048
     Dates: start: 20131123
  4. ATORVASTATIN [Concomitant]
     Route: 048
     Dates: start: 20131123

REACTIONS (1)
  - Haemoglobin decreased [Recovering/Resolving]
